FAERS Safety Report 9862851 (Version 1)
Quarter: 2014Q1

REPORT INFORMATION
  Report Type: Spontaneous
  Country: US (occurrence: US)
  Receive Date: 20140203
  Receipt Date: 20140203
  Transmission Date: 20141002
  Serious: Yes (Death)
  Sender: FDA-Public Use
  Company Number: CHPA2014US001729

PATIENT
  Age: 20 Year
  Sex: Male

DRUGS (4)
  1. DIPHENHYDRAMINE [Suspect]
     Route: 048
  2. CHLORPHENIRAMINE [Suspect]
     Route: 048
  3. TRIAMINIC (DEXTROMETHORPHAN) [Suspect]
     Route: 048
  4. FLUOXETINE [Suspect]
     Route: 048

REACTIONS (1)
  - Completed suicide [Fatal]
